FAERS Safety Report 10280314 (Version 1)
Quarter: 2014Q3

REPORT INFORMATION
  Report Type: Spontaneous
  Country: US (occurrence: US)
  Receive Date: 20140707
  Receipt Date: 20140707
  Transmission Date: 20150326
  Serious: No
  Sender: FDA-Public Use
  Company Number: US-PFIZER INC-2014181223

PATIENT
  Age: 44 Year
  Sex: Female

DRUGS (2)
  1. OXYCODONE [Suspect]
     Active Substance: OXYCODONE
     Dosage: UNK (MORNING AND BEDTIME)
  2. NEURONTIN [Suspect]
     Active Substance: GABAPENTIN
     Dosage: IN THE MORNING AND BEDTIME

REACTIONS (2)
  - Somnolence [Unknown]
  - Drug effect incomplete [Unknown]
